FAERS Safety Report 16051174 (Version 1)
Quarter: 2019Q1

REPORT INFORMATION
  Report Type: Spontaneous
  Country: US (occurrence: US)
  Receive Date: 20190308
  Receipt Date: 20190308
  Transmission Date: 20190418
  Serious: No
  Sender: FDA-Public Use
  Company Number: US-PFIZER INC-2012195436

PATIENT
  Age: 53 Year
  Sex: Male

DRUGS (11)
  1. VIAGRA [Suspect]
     Active Substance: SILDENAFIL CITRATE
     Dosage: 1/2 OF 100 MG, ONCE A DAY FOR 90 DAYS
     Route: 048
  2. HYDROCODONE [Concomitant]
     Active Substance: HYDROCODONE
     Dosage: UNK (10/60 QD-TID)
  3. ANDROGEL [Concomitant]
     Active Substance: TESTOSTERONE
     Dosage: 1 %, 1X/DAY
  4. ROPINIROLE. [Concomitant]
     Active Substance: ROPINIROLE
     Dosage: 1 MG, 1X/DAY
  5. ANDROGEL [Concomitant]
     Active Substance: TESTOSTERONE
     Dosage: 10 %, 1X/DAY
  6. BYSTOLIC [Concomitant]
     Active Substance: NEBIVOLOL HYDROCHLORIDE
     Dosage: 5 MG, 1X/DAY
  7. DIAZEPAM. [Concomitant]
     Active Substance: DIAZEPAM
     Dosage: 5 MG 1-2 QD
  8. NIFEDIPINE. [Concomitant]
     Active Substance: NIFEDIPINE
     Dosage: 30 MG, 1X/DAY
  9. CILOSTAZOL. [Concomitant]
     Active Substance: CILOSTAZOL
     Dosage: 100 MG, 1X/DAY
  10. VIAGRA [Suspect]
     Active Substance: SILDENAFIL CITRATE
     Indication: THROMBOANGIITIS OBLITERANS
     Dosage: 100 MG, AS NEEDED
     Route: 048
  11. HYDROCODONE [Concomitant]
     Active Substance: HYDROCODONE
     Dosage: 10/650 (TID) THREE TIMES A DAY EVERYDAY

REACTIONS (1)
  - Drug effective for unapproved indication [Unknown]
